FAERS Safety Report 16793780 (Version 1)
Quarter: 2019Q3

REPORT INFORMATION
  Report Type: Spontaneous
  Country: GB (occurrence: GB)
  Receive Date: 20190911
  Receipt Date: 20190911
  Transmission Date: 20191005
  Serious: Yes (Other)
  Sender: FDA-Public Use
  Company Number: GB-TITAN PHARMACEUTICALS-2019TAN00047

PATIENT
  Age: 51 Year
  Sex: Female

DRUGS (2)
  1. BUPRENORPHINE. [Suspect]
     Active Substance: BUPRENORPHINE
     Indication: CHEST PAIN
     Dosage: UNK
     Route: 062
     Dates: start: 2013, end: 2018
  2. BUPRENORPHINE. [Suspect]
     Active Substance: BUPRENORPHINE
     Indication: TOOTHACHE

REACTIONS (1)
  - Neuropsychiatric symptoms [Recovering/Resolving]

NARRATIVE: CASE EVENT DATE: 201612
